FAERS Safety Report 5386996-2 (Version None)
Quarter: 2007Q3

REPORT INFORMATION
  Report Type: 
  Country: None (occurrence: None)
  Receive Date: 20070713
  Receipt Date: 20070711
  Transmission Date: 20080115
  Serious: Yes (Death, Life-Threatening)
  Sender: FDA-Public Use
  Company Number: FR-MERCK-0706FRA00062

PATIENT
  Age: 72 Year
  Sex: Male

DRUGS (7)
  1. CANCIDAS [Suspect]
     Indication: CANDIDA PNEUMONIA
     Route: 042
     Dates: start: 20070613, end: 20070613
  2. CANCIDAS [Suspect]
     Route: 042
     Dates: start: 20070614, end: 20070622
  3. CANCIDAS [Suspect]
     Indication: URINARY TRACT INFECTION
     Route: 042
     Dates: start: 20070613, end: 20070613
  4. CANCIDAS [Suspect]
     Route: 042
     Dates: start: 20070614, end: 20070622
  5. CORTICOSTEROIDS (UNSPECIFIED) [Concomitant]
     Route: 065
     Dates: end: 20070622
  6. [THERAPY UNSPECIFIED] [Concomitant]
     Indication: DEPRESSION
     Route: 065
     Dates: end: 20070622
  7. [THERAPY UNSPECIFIED] [Concomitant]
     Indication: ANXIETY
     Route: 065
     Dates: end: 20070622

REACTIONS (3)
  - ANURIA [None]
  - DEATH [None]
  - RENAL FAILURE ACUTE [None]
